FAERS Safety Report 5763202-8 (Version None)
Quarter: 2008Q2

REPORT INFORMATION
  Report Type: 
  Country: None (occurrence: None)
  Receive Date: 20080609
  Receipt Date: 20080529
  Transmission Date: 20081010
  Serious: Yes (Life-Threatening, Hospitalization)
  Sender: FDA-Public Use
  Company Number: DE-ELI_LILLY_AND_COMPANY-DE200805006171

PATIENT
  Sex: Female

DRUGS (2)
  1. STRATTERA [Suspect]
     Indication: ABNORMAL BEHAVIOUR
     Dosage: 60 MG, DAILY (1/D)
     Route: 048
     Dates: start: 20071217
  2. STRATTERA [Suspect]
     Dosage: 60 MG, 8 CAPSULES OVERDOSE
     Route: 048
     Dates: start: 20080311, end: 20080311

REACTIONS (6)
  - OVERDOSE [None]
  - PALPITATIONS [None]
  - SOMNOLENCE [None]
  - SUICIDE ATTEMPT [None]
  - TACHYCARDIA [None]
  - VOMITING [None]
